FAERS Safety Report 12881978 (Version 1)
Quarter: 2016Q4

REPORT INFORMATION
  Report Type: Spontaneous
  Country: GB (occurrence: GB)
  Receive Date: 20161025
  Receipt Date: 20161025
  Transmission Date: 20170207
  Serious: Yes (Hospitalization)
  Sender: FDA-Public Use
  Company Number: GB-TEVA-705925ACC

PATIENT
  Age: 72 Year
  Sex: Female

DRUGS (7)
  1. PIOGLITAZONE. [Suspect]
     Active Substance: PIOGLITAZONE
     Indication: DIABETES MELLITUS
     Dosage: 45 MILLIGRAM DAILY; IN THE MORNING.
     Route: 048
     Dates: end: 20160814
  2. GLICLAZIDE [Concomitant]
     Active Substance: GLICLAZIDE
     Indication: DIABETES MELLITUS
     Dosage: STOPPED
  3. ATORVASTATIN [Concomitant]
     Active Substance: ATORVASTATIN
  4. BISOPROLOL [Concomitant]
     Active Substance: BISOPROLOL
  5. PARACETAMOL [Concomitant]
     Active Substance: ACETAMINOPHEN
  6. METFORMIN [Concomitant]
     Active Substance: METFORMIN HYDROCHLORIDE
     Indication: DIABETES MELLITUS
     Dosage: STOPPED
  7. ASPIRIN. [Concomitant]
     Active Substance: ASPIRIN

REACTIONS (10)
  - Malaise [Unknown]
  - Dyspnoea exertional [Unknown]
  - Lethargy [Unknown]
  - Pulmonary congestion [Unknown]
  - Oedema peripheral [Recovered/Resolved]
  - Hyperglycaemia [Recovered/Resolved]
  - Thirst [Unknown]
  - Fluid retention [Recovered/Resolved]
  - Nausea [Unknown]
  - Cardiomegaly [Unknown]

NARRATIVE: CASE EVENT DATE: 201608
